FAERS Safety Report 4562441-1 (Version None)
Quarter: 2005Q1

REPORT INFORMATION
  Report Type: 
  Country: None (occurrence: None)
  Receive Date: 20050121
  Receipt Date: 20050113
  Transmission Date: 20050727
  Serious: Yes (Disabling)
  Sender: FDA-Public Use
  Company Number: NLWYE317906JAN05

PATIENT
  Age: 65 Year
  Sex: Female

DRUGS (6)
  1. EFFEXOR XR [Suspect]
     Indication: DEPRESSION
     Dosage: SEE IMAGE
     Route: 048
     Dates: start: 20031103, end: 20040201
  2. EFFEXOR XR [Suspect]
     Indication: DEPRESSION
     Dosage: SEE IMAGE
     Route: 048
     Dates: start: 20040201, end: 20040408
  3. DIPIPERON (PIPAMPERONE) [Concomitant]
  4. LORAMET (LORMETAZEPAM) [Concomitant]
  5. LITHIUM CARBONATE [Concomitant]
  6. LORAZEPAM [Concomitant]

REACTIONS (2)
  - BALANCE DISORDER [None]
  - FALL [None]
